FAERS Safety Report 5191404-0 (Version None)
Quarter: 2006Q4

REPORT INFORMATION
  Report Type: 
  Country: None (occurrence: None)
  Receive Date: 20061219
  Receipt Date: 20061205
  Transmission Date: 20070319
  Serious: Yes (Hospitalization)
  Sender: FDA-Public Use
  Company Number: 2006PV026369

PATIENT
  Age: 64 Year
  Sex: Male
  Weight: 111.1313 kg

DRUGS (6)
  1. BYETTA [Suspect]
     Indication: DIABETES MELLITUS NON-INSULIN-DEPENDENT
     Dosage: 10 MCG; X1; SC; SEE IMAGE
     Route: 058
     Dates: start: 20051201, end: 20060101
  2. BYETTA [Suspect]
     Indication: DIABETES MELLITUS NON-INSULIN-DEPENDENT
     Dosage: 10 MCG; X1; SC; SEE IMAGE
     Route: 058
     Dates: start: 20060101, end: 20061101
  3. BYETTA [Suspect]
     Indication: DIABETES MELLITUS NON-INSULIN-DEPENDENT
     Dosage: 10 MCG; X1; SC; SEE IMAGE
     Route: 058
     Dates: start: 20061205, end: 20061205
  4. LOSARTAN POTASSIUM [Concomitant]
  5. LISINOPRIL [Concomitant]
  6. LASIX [Concomitant]

REACTIONS (10)
  - BLOOD POTASSIUM DECREASED [None]
  - BLOOD PRESSURE INCREASED [None]
  - DECREASED APPETITE [None]
  - DEHYDRATION [None]
  - DIARRHOEA [None]
  - FLUID INTAKE REDUCED [None]
  - INFLUENZA [None]
  - NAUSEA [None]
  - ORAL INTAKE REDUCED [None]
  - VOMITING [None]
